FAERS Safety Report 17111064 (Version 5)
Quarter: 2020Q1

REPORT INFORMATION
  Report Type: Spontaneous
  Country: JP (occurrence: JP)
  Receive Date: 20191204
  Receipt Date: 20200123
  Transmission Date: 20200409
  Serious: Yes (Death, Hospitalization)
  Sender: FDA-Public Use
  Company Number: JP-EISAI MEDICAL RESEARCH-EC-2019-066240

PATIENT
  Sex: Male

DRUGS (2)
  1. LENVIMA [Suspect]
     Active Substance: LENVATINIB
     Indication: HEPATOCELLULAR CARCINOMA
     Route: 048
     Dates: start: 20190220, end: 20191112
  2. LOXONIN [Concomitant]
     Active Substance: LOXOPROFEN SODIUM
     Indication: DERMATITIS
     Dosage: DOSE AND FREQUENCY UNKNOWN
     Route: 065

REACTIONS (8)
  - Hypothyroidism [Recovered/Resolved]
  - Dermatitis [Not Recovered/Not Resolved]
  - Cardiac failure [Fatal]
  - Fall [Unknown]
  - Oedema [Not Recovered/Not Resolved]
  - Necrotising fasciitis [Not Recovered/Not Resolved]
  - Proteinuria [Recovered/Resolved]
  - Palmar-plantar erythrodysaesthesia syndrome [Unknown]

NARRATIVE: CASE EVENT DATE: 2019
